FAERS Safety Report 5491030-X (Version None)
Quarter: 2007Q4

REPORT INFORMATION
  Report Type: 
  Country: None (occurrence: None)
  Receive Date: 20071019
  Receipt Date: 20071009
  Transmission Date: 20080405
  Serious: Yes (Other)
  Sender: FDA-Public Use
  Company Number: US-PFIZER INC-2007031764

PATIENT
  Sex: Female
  Weight: 55.3 kg

DRUGS (8)
  1. CHANTIX [Suspect]
     Indication: SMOKING CESSATION THERAPY
     Route: 048
     Dates: start: 20070415
  2. ZOLOFT [Interacting]
     Indication: DEPRESSION
  3. XANAX [Interacting]
     Indication: DEPRESSION
  4. INSULIN [Concomitant]
     Indication: TYPE 1 DIABETES MELLITUS
  5. VASOTEC [Concomitant]
  6. TENORMIN [Concomitant]
  7. ALL OTHER THERAPEUTIC PRODUCTS [Concomitant]
  8. NEURONTIN [Concomitant]

REACTIONS (6)
  - BLOOD GLUCOSE INCREASED [None]
  - DRUG INEFFECTIVE [None]
  - DRUG INTERACTION [None]
  - DYSGEUSIA [None]
  - DYSPEPSIA [None]
  - NAUSEA [None]
